FAERS Safety Report 9656718 (Version 1)
Quarter: 2013Q4

REPORT INFORMATION
  Report Type: Spontaneous
  Country: US (occurrence: None)
  Receive Date: 20131029
  Receipt Date: 20131029
  Transmission Date: 20140711
  Serious: Yes (Hospitalization)
  Sender: FDA-Public Use
  Company Number: None

PATIENT
  Age: 23 Year
  Sex: Female
  Weight: 72.58 kg

DRUGS (2)
  1. HABITROL [Suspect]
     Indication: SMOKING CESSATION THERAPY
     Dosage: 14 MG DAY ONE
     Dates: start: 20130803
  2. NICOTINE REPLACEMENT GUM [Concomitant]

REACTIONS (3)
  - Post lumbar puncture syndrome [None]
  - Pneumonia [None]
  - Pharyngitis streptococcal [None]
